FAERS Safety Report 16661267 (Version 1)
Quarter: 2019Q3

REPORT INFORMATION
  Report Type: Spontaneous
  Country: US (occurrence: US)
  Receive Date: 20190802
  Receipt Date: 20190802
  Transmission Date: 20191004
  Serious: No
  Sender: FDA-Public Use
  Company Number: US-SHIRE-US201924992

PATIENT
  Sex: Female

DRUGS (1)
  1. MOTEGRITY [Suspect]
     Active Substance: PRUCALOPRIDE SUCCINATE
     Indication: ABDOMINAL DISCOMFORT
     Route: 065

REACTIONS (4)
  - Anxiety [Unknown]
  - Unevaluable event [Unknown]
  - Mental disorder [Unknown]
  - Mood swings [Unknown]
